FAERS Safety Report 16162746 (Version 1)
Quarter: 2019Q2

REPORT INFORMATION
  Report Type: Spontaneous
  Country: US (occurrence: US)
  Receive Date: 20190404
  Receipt Date: 20190404
  Transmission Date: 20190711
  Serious: No
  Sender: FDA-Public Use
  Company Number: None

PATIENT
  Age: 22 Year
  Sex: Female
  Weight: 147 kg

DRUGS (1)
  1. CHLORHEXIDINE PREP [Suspect]
     Active Substance: CHLORHEXIDINE

REACTIONS (6)
  - Application site swelling [None]
  - Application site pain [None]
  - Complication associated with device [None]
  - Application site erythema [None]
  - Caesarean section [None]
  - Paraesthesia [None]

NARRATIVE: CASE EVENT DATE: 20190402
